FAERS Safety Report 21194392 (Version 1)
Quarter: 2022Q3

REPORT INFORMATION
  Report Type: Spontaneous
  Country: CA (occurrence: CA)
  Receive Date: 20220810
  Receipt Date: 20220810
  Transmission Date: 20221026
  Serious: Yes (Other)
  Sender: FDA-Public Use
  Company Number: None

PATIENT

DRUGS (1)
  1. AMLODIPINE BESYLATE [Suspect]
     Active Substance: AMLODIPINE BESYLATE
     Indication: Product used for unknown indication

REACTIONS (12)
  - Body temperature fluctuation [Unknown]
  - Choking [Unknown]
  - Cold sweat [Unknown]
  - Dizziness [Unknown]
  - Fatigue [Unknown]
  - Headache [Unknown]
  - Hot flush [Unknown]
  - Hyperhidrosis [Unknown]
  - Migraine [Unknown]
  - Nausea [Unknown]
  - Oropharyngeal pain [Unknown]
  - Somnolence [Unknown]
